FAERS Safety Report 9453128 (Version 3)
Quarter: 2013Q3

REPORT INFORMATION
  Report Type: Spontaneous
  Country: BR (occurrence: BR)
  Receive Date: 20130812
  Receipt Date: 20130906
  Transmission Date: 20140515
  Serious: Yes (Hospitalization)
  Sender: FDA-Public Use
  Company Number: BR-GENZYME-FABR-1003491

PATIENT
  Age: 29 Year
  Sex: Female

DRUGS (1)
  1. FABRAZYME [Suspect]
     Indication: FABRY^S DISEASE
     Dosage: 1 MG/KG, Q2W
     Route: 042
     Dates: start: 20120308

REACTIONS (3)
  - Premature separation of placenta [Recovered/Resolved]
  - Maternal exposure during pregnancy [Unknown]
  - Blood pressure increased [Unknown]
